FAERS Safety Report 23562011 (Version 1)
Quarter: 2024Q1

REPORT INFORMATION
  Report Type: Spontaneous
  Country: JP (occurrence: JP)
  Receive Date: 20240226
  Receipt Date: 20240226
  Transmission Date: 20240409
  Serious: Yes (Other)
  Sender: FDA-Public Use
  Company Number: JP-BAXTER-2023BAX028565

PATIENT
  Age: 12 Year
  Sex: Female
  Weight: 35 kg

DRUGS (17)
  1. IFOSFAMIDE [Suspect]
     Active Substance: IFOSFAMIDE
     Indication: Rhabdomyosarcoma
     Dosage: 2.1 G, ONCE A DAY
     Route: 041
     Dates: start: 20230127, end: 20230808
  2. IFOSFAMIDE [Suspect]
     Active Substance: IFOSFAMIDE
     Dosage: UNK, WITH ISOTONIC SODIUM CHLORIDE SOLUTION (DRIP INFUSION FOR 1 HOUR)
     Route: 041
     Dates: start: 20230808
  3. MESNA [Suspect]
     Active Substance: MESNA
     Indication: Prophylaxis
     Dosage: 400 MG, ONCE A DAY, DOSAGE FORM: INJECTION
     Route: 042
     Dates: start: 20220308, end: 20231127
  4. MESNA [Suspect]
     Active Substance: MESNA
     Dosage: UNK, START TIME: 10:56 A.M
     Route: 042
     Dates: start: 20230808
  5. MESNA [Suspect]
     Active Substance: MESNA
     Dosage: UNK, START TIME: 03:34 P.M
     Route: 042
     Dates: start: 20230808
  6. MESNA [Suspect]
     Active Substance: MESNA
     Dosage: UNK, START TIME: 06:39 P.M
     Route: 042
     Dates: start: 20230808
  7. FOSAPREPITANT [Suspect]
     Active Substance: FOSAPREPITANT
     Indication: Rhabdomyosarcoma
     Dosage: 150 MG, ONCE A DAY
     Route: 041
     Dates: start: 20220510, end: 20240129
  8. FOSAPREPITANT [Suspect]
     Active Substance: FOSAPREPITANT
     Dosage: UNK, ALONG WITH ISOTONIC SODIUM CHLORIDE SOLUTION 100 ML (DRIP INFUSION FOR 30 MINUTES), START TIME:
     Route: 041
     Dates: start: 20230808
  9. KYTRIL [Suspect]
     Active Substance: GRANISETRON HYDROCHLORIDE
     Indication: Rhabdomyosarcoma
     Dosage: 2 MG, ONCE A DAY
     Route: 041
     Dates: start: 20220308, end: 20240202
  10. DEXAMETHASONE SODIUM PHOSPHATE [Suspect]
     Active Substance: DEXAMETHASONE PHOSPHATE\DEXAMETHASONE SODIUM PHOSPHATE
     Indication: Rhabdomyosarcoma
     Dosage: 6.6 MG, ONCE A DAY
     Route: 041
     Dates: start: 20220308, end: 20240202
  11. VORICONAZOLE [Suspect]
     Active Substance: VORICONAZOLE
     Indication: Pneumonia fungal
     Dosage: 325 MG, EVERY 12 HOURS
     Route: 048
     Dates: start: 20230221
  12. SULFAMETHOXAZOLE\TRIMETHOPRIM [Suspect]
     Active Substance: SULFAMETHOXAZOLE\TRIMETHOPRIM
     Indication: Pneumocystis jirovecii pneumonia
     Dosage: 1 DOSAGE FORM, ONCE A DAY
     Route: 048
     Dates: start: 20230217
  13. ISOTONIC SODIUM CHLORIDE SOLUTION [Suspect]
     Active Substance: SODIUM CHLORIDE
     Dosage: 100 ML (DRIP INFUSION FOR 30 MINUTES), AT 09:33 A.M
     Route: 065
     Dates: start: 20230808
  14. ISOTONIC SODIUM CHLORIDE SOLUTION [Suspect]
     Active Substance: SODIUM CHLORIDE
     Dosage: 50 ML (DRIP INFUSION FOR 30 MINUTES), AT 10:03
     Route: 065
     Dates: start: 20230808
  15. ISOTONIC SODIUM CHLORIDE SOLUTION [Suspect]
     Active Substance: SODIUM CHLORIDE
     Dosage: UNK, ALONG WITH IFOMIDE, DRIP INFUSION FOR 1 HOUR
     Route: 041
     Dates: start: 20230808
  16. GRANISETRON HYDROCHLORIDE [Suspect]
     Active Substance: GRANISETRON HYDROCHLORIDE
     Dosage: UNK, START TIME: 10:03 A.M
     Route: 065
     Dates: start: 20230808
  17. DEXAMETHASONE SODIUM PHOSPHATE [Suspect]
     Active Substance: DEXAMETHASONE PHOSPHATE\DEXAMETHASONE SODIUM PHOSPHATE
     Dosage: UNK, START TIME: 10:03 A.M
     Route: 065
     Dates: start: 20230808

REACTIONS (7)
  - Toxic encephalopathy [Recovered/Resolved]
  - Clonic convulsion [Recovered/Resolved]
  - Eye movement disorder [Unknown]
  - Unresponsive to stimuli [Recovered/Resolved]
  - Cyanosis [Unknown]
  - Somnolence [Unknown]
  - Headache [Unknown]

NARRATIVE: CASE EVENT DATE: 20230808
